FAERS Safety Report 4509142-3 (Version None)
Quarter: 2004Q4

REPORT INFORMATION
  Report Type: 
  Country: None (occurrence: None)
  Receive Date: 20041025
  Receipt Date: 20030903
  Transmission Date: 20050328
  Serious: Yes (Other)
  Sender: FDA-Public Use
  Company Number: NSADSS2003013495

PATIENT
  Age: 49 Year
  Sex: Female
  Weight: 58.2872 kg

DRUGS (9)
  1. REMICADE [Suspect]
     Indication: CROHN'S DISEASE
     Dosage: SEE IMAGE
     Route: 041
     Dates: start: 20010101, end: 20010101
  2. REMICADE [Suspect]
     Indication: CROHN'S DISEASE
     Dosage: SEE IMAGE
     Route: 041
     Dates: start: 20030224, end: 20030224
  3. PREDNISONE [Concomitant]
  4. ACCUPRIL [Concomitant]
  5. NEXIUM [Concomitant]
  6. IMURAN [Concomitant]
  7. HYDROCHLOROTHIAZIDE [Concomitant]
  8. POTASSIUM CHLORIDE [Concomitant]
  9. PREMARIN [Concomitant]

REACTIONS (1)
  - SERUM SICKNESS [None]
